FAERS Safety Report 25801559 (Version 3)
Quarter: 2025Q3

REPORT INFORMATION
  Report Type: Report from Study
  Country: CA (occurrence: CA)
  Receive Date: 20250915
  Receipt Date: 20250930
  Transmission Date: 20251020
  Serious: Yes (Hospitalization)
  Sender: ALEXION PHARMACEUTICALS
  Company Number: CA-AstraZeneca-CH-00947039A

PATIENT
  Age: 85 Year
  Sex: Female

DRUGS (18)
  1. ULTOMIRIS [Suspect]
     Active Substance: RAVULIZUMAB-CWVZ
     Indication: Myasthenia gravis
  2. ALENDRONATE [Concomitant]
     Active Substance: ALENDRONATE SODIUM
  3. CELECOXIB [Concomitant]
     Active Substance: CELECOXIB
  4. DICLOFENAC [Concomitant]
     Active Substance: DICLOFENAC
  5. PREGABALIN [Concomitant]
     Active Substance: PREGABALIN
  6. ROSUVASTATIN CALCIUM [Concomitant]
     Active Substance: ROSUVASTATIN CALCIUM
  7. TELMISARTAN [Concomitant]
     Active Substance: TELMISARTAN
  8. PYRIDOSTIGMINE [Concomitant]
     Active Substance: PYRIDOSTIGMINE
  9. IRON [Concomitant]
     Active Substance: IRON
  10. MIRABEGRON [Concomitant]
     Active Substance: MIRABEGRON
  11. ZOPICLONE [Concomitant]
     Active Substance: ZOPICLONE
  12. EFINACONAZOLE [Concomitant]
     Active Substance: EFINACONAZOLE
  13. TYLENOL [Concomitant]
     Active Substance: ACETAMINOPHEN
  14. SENNOSIDES [Concomitant]
     Active Substance: SENNOSIDES
  15. MAGNESIUM HYDROXIDE [Concomitant]
     Active Substance: MAGNESIUM HYDROXIDE
  16. BUPRENORPHINE [Concomitant]
     Active Substance: BUPRENORPHINE
     Route: 050
  17. TIOTROPIUM BROMIDE [Concomitant]
     Active Substance: TIOTROPIUM BROMIDE
  18. ALUMINUM [Concomitant]
     Active Substance: ALUMINUM

REACTIONS (6)
  - Asthenia [Not Recovered/Not Resolved]
  - Pain [Unknown]
  - Fall [Unknown]
  - Diarrhoea [Recovered/Resolved]
  - Dyspnoea [Not Recovered/Not Resolved]
  - Musculoskeletal pain [Unknown]

NARRATIVE: CASE EVENT DATE: 20250907
